FAERS Safety Report 9519302 (Version 1)
Quarter: 2013Q3

REPORT INFORMATION
  Report Type: Spontaneous
  Country: US (occurrence: None)
  Receive Date: 20130911
  Receipt Date: 20130911
  Transmission Date: 20140515
  Serious: Yes (Hospitalization)
  Sender: FDA-Public Use
  Company Number: None

PATIENT
  Age: 62 Year
  Sex: Female
  Weight: 89.7 kg

DRUGS (2)
  1. PRASUGREL [Suspect]
     Indication: CORONARY ARTERIAL STENT INSERTION
     Dates: start: 20130221, end: 20130712
  2. ASPIRIN [Suspect]
     Indication: CORONARY ARTERIAL STENT INSERTION
     Dates: start: 20130520, end: 20130712

REACTIONS (10)
  - Dizziness [None]
  - Dyspnoea [None]
  - Hypotension [None]
  - Chills [None]
  - Nausea [None]
  - Diarrhoea [None]
  - Anaemia [None]
  - Gastrointestinal haemorrhage [None]
  - Tachycardia [None]
  - Tremor [None]
